FAERS Safety Report 5160906-5 (Version None)
Quarter: 2006Q4

REPORT INFORMATION
  Report Type: 
  Country: None (occurrence: None)
  Receive Date: 20061130
  Receipt Date: 20061116
  Transmission Date: 20070319
  Serious: Yes (Other)
  Sender: FDA-Public Use
  Company Number: PHBS2006JP18031

PATIENT
  Age: 6 Year
  Sex: Male

DRUGS (1)
  1. ZADITEN [Suspect]
     Indication: RHINITIS ALLERGIC
     Dosage: UNK, UNK
     Route: 048
     Dates: start: 20050914

REACTIONS (1)
  - BLOOD ALKALINE PHOSPHATASE INCREASED [None]
